FAERS Safety Report 19702464 (Version 1)
Quarter: 2021Q3

REPORT INFORMATION
  Report Type: Spontaneous
  Country: US (occurrence: US)
  Receive Date: 20210815
  Receipt Date: 20210815
  Transmission Date: 20211014
  Serious: No
  Sender: FDA-Public Use
  Company Number: US-SA-2021SA263111

PATIENT
  Age: 80 Year
  Sex: Male

DRUGS (4)
  1. DUPIXENT [Suspect]
     Active Substance: DUPILUMAB
     Dosage: 300 MG, EVERY 20 OR 21 DAYS, WENT OUT TO 30 (EVERY 30 DAYS)
  2. PFIZER?BIONTECH COVID?19 VACCINE [Suspect]
     Active Substance: TOZINAMERAN
     Indication: COVID-19 IMMUNISATION
     Dosage: 0.3 ML
     Dates: start: 20210111, end: 20210111
  3. PFIZER?BIONTECH COVID?19 VACCINE [Suspect]
     Active Substance: TOZINAMERAN
     Dosage: 0.3 ML
     Dates: start: 20210201, end: 20210201
  4. DUPIXENT [Suspect]
     Active Substance: DUPILUMAB
     Indication: DERMATITIS ATOPIC
     Dosage: 600 MG
     Dates: start: 2017, end: 2017

REACTIONS (5)
  - Paraesthesia [Not Recovered/Not Resolved]
  - Exposure to SARS-CoV-2 [Recovered/Resolved]
  - Rash [Unknown]
  - SARS-CoV-2 antibody test negative [Not Recovered/Not Resolved]
  - Product use issue [Unknown]

NARRATIVE: CASE EVENT DATE: 2019
